FAERS Safety Report 21729692 (Version 1)
Quarter: 2022Q4

REPORT INFORMATION
  Report Type: Spontaneous
  Country: US (occurrence: US)
  Receive Date: 20221214
  Receipt Date: 20221214
  Transmission Date: 20230113
  Serious: Yes (Other)
  Sender: FDA-Public Use
  Company Number: US-BoehringerIngelheim-2022-BI-208049

PATIENT
  Age: 72 Year
  Sex: Female

DRUGS (1)
  1. COMBIVENT RESPIMAT [Suspect]
     Active Substance: ALBUTEROL SULFATE\IPRATROPIUM BROMIDE
     Indication: Product used for unknown indication
     Dosage: 20-100 MCG/ACT
     Route: 055
     Dates: start: 20220202, end: 20221214

REACTIONS (1)
  - Lung cancer metastatic [Recovered/Resolved]

NARRATIVE: CASE EVENT DATE: 20220202
